FAERS Safety Report 16980742 (Version 1)
Quarter: 2019Q4

REPORT INFORMATION
  Report Type: Spontaneous
  Country: DE (occurrence: DE)
  Receive Date: 20191031
  Receipt Date: 20191031
  Transmission Date: 20200122
  Serious: Yes (Other)
  Sender: FDA-Public Use
  Company Number: DE-PFM-2019-12891

PATIENT

DRUGS (3)
  1. PROPRANOLOL [Suspect]
     Active Substance: PROPRANOLOL HYDROCHLORIDE
     Indication: HYPERTHYROIDISM
     Dosage: 20 MG, TID (3/DAY)
     Route: 048
  2. PROPYCIL [Suspect]
     Active Substance: PROPYLTHIOURACIL
     Indication: HYPERTHYROIDISM
     Dosage: 50 MG, TID (3/DAY)
     Route: 048
     Dates: start: 20190926
  3. PREDNISOLON [Concomitant]
     Active Substance: PREDNISOLONE
     Indication: HYPERTHYROIDISM
     Dosage: 40 MG, QD (1/DAY)
     Route: 048

REACTIONS (3)
  - Product administered to patient of inappropriate age [Unknown]
  - Inappropriate schedule of product administration [Unknown]
  - Abortion missed [Recovered/Resolved]

NARRATIVE: CASE EVENT DATE: 20191002
